FAERS Safety Report 19149106 (Version 3)
Quarter: 2021Q2

REPORT INFORMATION
  Report Type: Spontaneous
  Country: US (occurrence: US)
  Receive Date: 20210416
  Receipt Date: 20210425
  Transmission Date: 20210717
  Serious: No
  Sender: FDA-Public Use
  Company Number: US-AMGEN-USASP2021054900

PATIENT
  Age: 49 Year
  Sex: Female

DRUGS (1)
  1. AIMOVIG [Suspect]
     Active Substance: ERENUMAB-AOOE
     Indication: MIGRAINE
     Dosage: 70 MILLIGRAM, EVERY 28 DAYS, UNSUCCESSFUL ATTEMPT
     Route: 065
     Dates: start: 20210407

REACTIONS (2)
  - Accidental exposure to product [Unknown]
  - Device difficult to use [Unknown]

NARRATIVE: CASE EVENT DATE: 20210408
